FAERS Safety Report 10876114 (Version 1)
Quarter: 2015Q1

REPORT INFORMATION
  Report Type: Spontaneous
  Country: US (occurrence: US)
  Receive Date: 20150227
  Receipt Date: 20150227
  Transmission Date: 20150721
  Serious: Yes (Other)
  Sender: FDA-Public Use
  Company Number: US-AMGEN-USASP2014023476

PATIENT
  Age: 3 Year
  Sex: Female

DRUGS (2)
  1. ENBREL [Suspect]
     Active Substance: ETANERCEPT
     Indication: PSORIASIS
     Dosage: 10 MG, QWK
     Route: 058
  2. ENBREL [Suspect]
     Active Substance: ETANERCEPT
     Indication: FAMILIAL MEDITERRANEAN FEVER

REACTIONS (8)
  - Injection site rash [Unknown]
  - Pyrexia [Unknown]
  - Swelling [Unknown]
  - Staphylococcal infection [Unknown]
  - Injection site swelling [Unknown]
  - Drug effect incomplete [Unknown]
  - Injection site erythema [Unknown]
  - Condition aggravated [Unknown]
